FAERS Safety Report 16072467 (Version 1)
Quarter: 2019Q1

REPORT INFORMATION
  Report Type: Spontaneous
  Country: CN (occurrence: CN)
  Receive Date: 20190314
  Receipt Date: 20190314
  Transmission Date: 20190418
  Serious: Yes (Hospitalization, Other)
  Sender: FDA-Public Use
  Company Number: CN-STRIDES ARCOLAB LIMITED-2019SP002255

PATIENT
  Age: 36 Year
  Sex: Male

DRUGS (5)
  1. VANCOMYCIN [Suspect]
     Active Substance: VANCOMYCIN
     Indication: LUNG INFECTION
     Dosage: UNK
     Route: 065
     Dates: start: 2017
  2. OXACILLIN [Suspect]
     Active Substance: OXACILLIN SODIUM
     Indication: LUNG INFECTION
     Dosage: UNK
     Route: 065
     Dates: start: 2017
  3. AMIKACIN. [Suspect]
     Active Substance: AMIKACIN
     Indication: LUNG INFECTION
     Dosage: UNK
     Route: 065
     Dates: start: 2017
  4. IMIPENEM [Suspect]
     Active Substance: IMIPENEM
     Indication: LUNG INFECTION
     Dosage: UNK
     Route: 065
     Dates: start: 2017
  5. CEFTAZIDIME. [Suspect]
     Active Substance: CEFTAZIDIME
     Indication: LUNG INFECTION
     Dosage: UNK
     Route: 065
     Dates: start: 2017

REACTIONS (3)
  - Respiratory tract congestion [Recovered/Resolved]
  - Wound haemorrhage [Recovered/Resolved]
  - Coagulation factor deficiency [Recovered/Resolved]

NARRATIVE: CASE EVENT DATE: 2017
